FAERS Safety Report 6618331-3 (Version None)
Quarter: 2010Q1

REPORT INFORMATION
  Report Type: 
  Country: None (occurrence: None)
  Receive Date: 20100302
  Receipt Date: 20100218
  Transmission Date: 20100710
  Serious: Yes (Hospitalization)
  Sender: FDA-Public Use
  Company Number: 231729J10USA

PATIENT
  Age: 48 Year
  Sex: Female

DRUGS (7)
  1. REBIF [Suspect]
     Indication: MULTIPLE SCLEROSIS
     Dosage: 44 MCG, 3 IN 1 WEEKS, SUBCUTANEOUS
     Route: 058
     Dates: start: 20040101, end: 20060101
  2. REBIF [Suspect]
     Indication: MULTIPLE SCLEROSIS
     Dosage: 44 MCG, 3 IN 1 WEEKS, SUBCUTANEOUS
     Route: 058
     Dates: start: 20100106, end: 20100201
  3. PREMARIN [Concomitant]
  4. BACLOFEN [Concomitant]
  5. REQUIP [Concomitant]
  6. AMBIEN [Concomitant]
  7. NEURONTIN [Concomitant]

REACTIONS (7)
  - ABDOMINAL ADHESIONS [None]
  - CONSTIPATION [None]
  - GASTROINTESTINAL NECROSIS [None]
  - HYPOPHAGIA [None]
  - MULTIPLE SCLEROSIS RELAPSE [None]
  - PAIN [None]
  - VOMITING [None]
